FAERS Safety Report 5840554-1 (Version None)
Quarter: 2008Q3

REPORT INFORMATION
  Report Type: 
  Country: None (occurrence: None)
  Receive Date: 20080811
  Receipt Date: 20080731
  Transmission Date: 20090109
  Serious: Yes (Hospitalization, Disabling)
  Sender: FDA-Public Use
  Company Number: JP-AVENTIS-200810702JP

PATIENT
  Age: 81 Year
  Sex: Female
  Weight: 66 kg

DRUGS (15)
  1. AMARYL [Suspect]
     Indication: DIABETES MELLITUS
     Route: 048
     Dates: start: 20071228, end: 20080202
  2. AMARYL [Suspect]
     Route: 048
     Dates: start: 20080222, end: 20080223
  3. FASTIC [Concomitant]
  4. ACTOS [Concomitant]
  5. CALBLOCK [Concomitant]
     Dosage: DOSE: 1 TABLET
  6. CARDENALIN [Concomitant]
     Dosage: DOSE: 2 TABLETS
  7. GASTER D [Concomitant]
     Dosage: DOSE: 1 TABLET
  8. FLOMOX [Concomitant]
     Dosage: DOSE: 2 CAPSULE
  9. NORVASC [Concomitant]
     Dosage: DOSE: 1 TABLET
  10. OLMESARTAN MEDOXOMIL [Concomitant]
     Dosage: DOSE: 1 TABLET
  11. FERROMIA                           /00023516/ [Concomitant]
     Dosage: DOSE: 2 TABLETS
  12. BASEN [Concomitant]
     Dosage: DOSE: 3 TABLETS
  13. BIOFERMIN R [Concomitant]
     Dosage: DOSE: 3 PACKAGES
  14. BEZATOL [Concomitant]
     Dosage: DOSE: 200 MG
  15. MANICALOT [Concomitant]

REACTIONS (6)
  - CONVULSION [None]
  - EXPRESSIVE LANGUAGE DISORDER [None]
  - HEMIPLEGIA [None]
  - HYPOGLYCAEMIA [None]
  - HYPOGLYCAEMIC COMA [None]
  - MALAISE [None]
